FAERS Safety Report 6173326-1 (Version None)
Quarter: 2009Q2

REPORT INFORMATION
  Report Type: 
  Country: None (occurrence: None)
  Receive Date: 20090424
  Receipt Date: 20090122
  Transmission Date: 20091009
  Serious: No
  Sender: FDA-Public Use
  Company Number: ALL1-2009-00048

PATIENT
  Age: 32 Year
  Sex: Female
  Weight: 72.6 kg

DRUGS (3)
  1. VYVANSE [Suspect]
     Indication: ATTENTION DEFICIT/HYPERACTIVITY DISORDER
     Dosage: 70 MG, 1X/DAY:QD, ORAL
     Route: 048
     Dates: start: 20080501
  2. ADVIL [Concomitant]
  3. ZOLOFT [Concomitant]

REACTIONS (5)
  - DRUG EFFECT DECREASED [None]
  - FEELING JITTERY [None]
  - INSOMNIA [None]
  - TOOTH INFECTION [None]
  - VICTIM OF CRIME [None]
